FAERS Safety Report 16289719 (Version 1)
Quarter: 2019Q2

REPORT INFORMATION
  Report Type: Spontaneous
  Country: US (occurrence: US)
  Receive Date: 20190508
  Receipt Date: 20190508
  Transmission Date: 20190711
  Serious: Yes (Hospitalization)
  Sender: FDA-Public Use
  Company Number: None

PATIENT
  Age: 37 Year
  Sex: Female

DRUGS (12)
  1. STELARA [Suspect]
     Active Substance: USTEKINUMAB
     Indication: ENTERITIS
     Dosage: ?          OTHER FREQUENCY:Q 28 DAYS;?
     Route: 058
     Dates: start: 20180406
  2. JUNEL FE 1/20 [Concomitant]
     Active Substance: ETHINYL ESTRADIOL\NORETHINDRONE ACETATE
  3. PREDNISONE. [Concomitant]
     Active Substance: PREDNISONE
  4. AMOXICILLIN. [Concomitant]
     Active Substance: AMOXICILLIN
  5. ENOXAPARIN [Concomitant]
     Active Substance: ENOXAPARIN
  6. STELARA [Suspect]
     Active Substance: USTEKINUMAB
     Indication: CROHN^S DISEASE
     Dosage: ?          OTHER FREQUENCY:Q 28 DAYS;?
     Route: 058
     Dates: start: 20180406
  7. NITROFURANTIN [Concomitant]
     Active Substance: NITROFURANTOIN
  8. XYNTHROID [Concomitant]
  9. VIT D [Concomitant]
     Active Substance: VITAMIN D NOS
  10. GABAPENTIN. [Concomitant]
     Active Substance: GABAPENTIN
  11. MULTI CAP [Concomitant]
  12. UCERIS [Concomitant]
     Active Substance: BUDESONIDE

REACTIONS (3)
  - Heart rate increased [None]
  - Infection [None]
  - Blood pressure decreased [None]
